FAERS Safety Report 15673850 (Version 1)
Quarter: 2018Q4

REPORT INFORMATION
  Report Type: Spontaneous
  Country: US (occurrence: US)
  Receive Date: 20181129
  Receipt Date: 20181129
  Transmission Date: 20190205
  Serious: Yes (Disabling)
  Sender: FDA-Public Use
  Company Number: US-METUCHEN-2018-MET-TST06

PATIENT
  Age: 71 Year
  Sex: Male
  Weight: 79.45 kg

DRUGS (2)
  1. LISINOPRIL. [Concomitant]
     Active Substance: LISINOPRIL
     Indication: PRODUCT USED FOR UNKNOWN INDICATION
  2. STENDRA [Suspect]
     Active Substance: AVANAFIL
     Indication: PRODUCT USED FOR UNKNOWN INDICATION
     Dosage: ONE HALF OF A 200MG TABLET
     Route: 048
     Dates: start: 20170228, end: 20170228

REACTIONS (11)
  - Erythema [Recovered/Resolved]
  - Pruritus [Unknown]
  - Wrong technique in product usage process [Unknown]
  - Emotional distress [Unknown]
  - Dyspepsia [Unknown]
  - Rash generalised [Recovered/Resolved]
  - Pain [Unknown]
  - Dysphagia [Recovered/Resolved]
  - Malaise [Unknown]
  - Hypersensitivity [Unknown]
  - Oropharyngeal pain [Recovered/Resolved]

NARRATIVE: CASE EVENT DATE: 20170228
